FAERS Safety Report 19780602 (Version 1)
Quarter: 2021Q3

REPORT INFORMATION
  Report Type: Report from Study
  Country: CA (occurrence: CA)
  Receive Date: 20210902
  Receipt Date: 20210902
  Transmission Date: 20211014
  Serious: Yes (Other)
  Sender: FDA-Public Use
  Company Number: CA-OTSUKA-2021_027353

PATIENT
  Age: 73 Year
  Sex: Male

DRUGS (1)
  1. CEDAZURIDINE AND DECITABINE [Suspect]
     Active Substance: CEDAZURIDINE\DECITABINE
     Indication: MYELODYSPLASTIC SYNDROME
     Dosage: 35/100 MG
     Route: 048
     Dates: start: 20210708

REACTIONS (7)
  - Pancytopenia [Unknown]
  - Transfusion [Unknown]
  - Discoloured vomit [Unknown]
  - Weight decreased [Unknown]
  - Fatigue [Unknown]
  - Decreased appetite [Unknown]
  - Nausea [Not Recovered/Not Resolved]

NARRATIVE: CASE EVENT DATE: 20210824
